FAERS Safety Report 11832189 (Version 2)
Quarter: 2016Q1

REPORT INFORMATION
  Report Type: Spontaneous
  Country: BR (occurrence: BR)
  Receive Date: 20151214
  Receipt Date: 20160226
  Transmission Date: 20160525
  Serious: Yes (Other)
  Sender: FDA-Public Use
  Company Number: BR-JNJFOC-20151210426

PATIENT
  Age: 68 Year
  Sex: Female

DRUGS (1)
  1. SIMPONI [Suspect]
     Active Substance: GOLIMUMAB
     Indication: RHEUMATOID ARTHRITIS
     Route: 058

REACTIONS (8)
  - Abasia [Unknown]
  - Tendonitis [Unknown]
  - Pain in extremity [Unknown]
  - Keloid scar [Unknown]
  - Joint swelling [Unknown]
  - Arthritis [Unknown]
  - Muscular weakness [Unknown]
  - Bursitis [Unknown]

NARRATIVE: CASE EVENT DATE: 201508
